FAERS Safety Report 8183590-5 (Version None)
Quarter: 2012Q1

REPORT INFORMATION
  Report Type: 
  Country: None (occurrence: None)
  Receive Date: 20120305
  Receipt Date: 20120224
  Transmission Date: 20120608
  Serious: Yes (Hospitalization)
  Sender: FDA-Public Use
  Company Number: US-PURDUE-USA-2012-0082884

PATIENT
  Sex: Male

DRUGS (2)
  1. OXYCONTIN [Suspect]
     Indication: PRODUCT USED FOR UNKNOWN INDICATION
     Dosage: 40 MG, Q12H
     Route: 048
  2. OXYCONTIN [Suspect]
     Dosage: 80 MG, Q12H
     Route: 048

REACTIONS (2)
  - ABSCESS MANAGEMENT [None]
  - POST PROCEDURAL HAEMORRHAGE [None]
